FAERS Safety Report 4578238-2 (Version None)
Quarter: 2005Q1

REPORT INFORMATION
  Report Type: 
  Country: None (occurrence: None)
  Receive Date: 20050211
  Receipt Date: 20050131
  Transmission Date: 20050727
  Serious: Yes (Hospitalization)
  Sender: FDA-Public Use
  Company Number: US-JNJFOC-20040306504

PATIENT
  Sex: Male
  Weight: 91 kg

DRUGS (8)
  1. DURAGESIC [Suspect]
     Route: 062
  2. DURAGESIC [Suspect]
     Route: 062
  3. DURAGESIC [Suspect]
     Route: 062
  4. DURAGESIC [Suspect]
     Route: 062
  5. DURAGESIC [Suspect]
     Route: 062
  6. CELEBREX [Concomitant]
  7. NEXIUM [Concomitant]
  8. FLONASE [Concomitant]

REACTIONS (21)
  - ACUTE PSYCHOSIS [None]
  - AGITATION [None]
  - CHEST PAIN [None]
  - DEHYDRATION [None]
  - DIARRHOEA [None]
  - DRUG ABUSER [None]
  - DRUG DEPENDENCE [None]
  - DRUG SCREEN POSITIVE [None]
  - DRUG WITHDRAWAL SYNDROME [None]
  - GASTROENTERITIS [None]
  - HALLUCINATION [None]
  - HYPERHIDROSIS [None]
  - INSOMNIA [None]
  - LEUKOCYTOSIS [None]
  - NERVOUSNESS [None]
  - PAIN [None]
  - PHARMACEUTICAL PRODUCT COMPLAINT [None]
  - POST-TRAUMATIC STRESS DISORDER [None]
  - SELF-INJURIOUS IDEATION [None]
  - THERAPEUTIC RESPONSE DECREASED [None]
  - WEIGHT DECREASED [None]
